FAERS Safety Report 9663714 (Version 1)
Quarter: 2013Q4

REPORT INFORMATION
  Report Type: Spontaneous
  Country: IT (occurrence: IT)
  Receive Date: 20131101
  Receipt Date: 20131101
  Transmission Date: 20140711
  Serious: Yes (Other)
  Sender: FDA-Public Use
  Company Number: PHHY2013IT120411

PATIENT
  Age: 25 Year
  Sex: Male

DRUGS (3)
  1. CARBAMAZEPINE [Suspect]
     Indication: EPILEPSY
     Dosage: 200 MG, TID
  2. DEXAMETHASONE [Interacting]
     Indication: 21-HYDROXYLASE DEFICIENCY
     Dosage: 0.50 MG, PER DAY
  3. FLUDROCORTISONE [Interacting]
     Indication: 21-HYDROXYLASE DEFICIENCY
     Dosage: 0.1 MG, PER DAY

REACTIONS (8)
  - Adrenal insufficiency [Recovering/Resolving]
  - Fatigue [Recovering/Resolving]
  - Disturbance in attention [Recovering/Resolving]
  - Blood corticotrophin increased [Recovering/Resolving]
  - 17-hydroxyprogesterone increased [Recovering/Resolving]
  - Renin increased [Recovering/Resolving]
  - Blood androstenedione increased [Recovering/Resolving]
  - Drug interaction [Unknown]
